FAERS Safety Report 5469132-3 (Version None)
Quarter: 2007Q3

REPORT INFORMATION
  Report Type: 
  Country: None (occurrence: None)
  Receive Date: 20070927
  Receipt Date: 20070921
  Transmission Date: 20080115
  Serious: Yes (Other)
  Sender: FDA-Public Use
  Company Number: PHEH2007US12615

PATIENT
  Sex: Male

DRUGS (4)
  1. EXFORGE [Suspect]
     Dosage: 5/320 MG QD
     Dates: start: 20070828, end: 20070914
  2. COUMADIN [Concomitant]
  3. TOPROL-XL [Concomitant]
  4. HYDROCHLOROTHIAZIDE [Suspect]
     Dosage: 12.5 MG, QD
     Route: 048
     Dates: start: 20070828, end: 20070911

REACTIONS (1)
  - BLOOD CREATININE INCREASED [None]
